FAERS Safety Report 5971580-X (Version None)
Quarter: 2008Q4

REPORT INFORMATION
  Report Type: 
  Country: None (occurrence: None)
  Receive Date: 20081201
  Receipt Date: 20081127
  Transmission Date: 20090506
  Serious: Yes (Other)
  Sender: FDA-Public Use
  Company Number: TR-JNJFOC-20081106372

PATIENT
  Age: 66 Year
  Sex: Male

DRUGS (12)
  1. DURAGESIC-100 [Suspect]
     Route: 062
  2. DURAGESIC-100 [Suspect]
     Indication: PAIN
     Route: 062
  3. DIGOXIN [Suspect]
     Indication: DRUG USE FOR UNKNOWN INDICATION
  4. AMLODIPINE [Concomitant]
     Route: 048
  5. SPIRONOLACTONE [Concomitant]
     Route: 048
  6. GLICAZIDE [Concomitant]
     Indication: DIABETES MELLITUS
  7. METFORMIN HCL [Concomitant]
  8. BUDESONIDE [Concomitant]
  9. IPRATROPIUM/SALBUTAMOL [Concomitant]
  10. THEOPHYLLINE [Concomitant]
  11. ALLOPURINOL [Concomitant]
  12. LANSOPRAZOLE [Concomitant]

REACTIONS (7)
  - ANOREXIA [None]
  - BRADYCARDIA [None]
  - DIZZINESS [None]
  - HYPERTENSION [None]
  - NAUSEA [None]
  - SEDATION [None]
  - SOMNOLENCE [None]
